FAERS Safety Report 7314313-7 (Version None)
Quarter: 2011Q1

REPORT INFORMATION
  Report Type: 
  Country: None (occurrence: None)
  Receive Date: 20110225
  Receipt Date: 20100827
  Transmission Date: 20110831
  Serious: No
  Sender: FDA-Public Use
  Company Number: US-MYLANLABS-2010S1012881

PATIENT
  Age: 20 Year
  Sex: Male
  Weight: 92.99 kg

DRUGS (3)
  1. AMNESTEEM [Suspect]
     Indication: ACNE CYSTIC
     Dates: start: 20090918, end: 20100715
  2. SOTRET [Suspect]
     Indication: ACNE CYSTIC
     Dates: start: 20081208, end: 20090305
  3. CLARAVIS [Suspect]
     Indication: ACNE CYSTIC
     Dates: start: 20100505, end: 20100715

REACTIONS (2)
  - ERYTHEMA [None]
  - FLUSHING [None]
